FAERS Safety Report 9671806 (Version 3)
Quarter: 2014Q1

REPORT INFORMATION
  Report Type: Spontaneous
  Country: US (occurrence: US)
  Receive Date: 20131106
  Receipt Date: 20140219
  Transmission Date: 20141002
  Serious: Yes (Hospitalization)
  Sender: FDA-Public Use
  Company Number: US-SA-FABR-1003579

PATIENT
  Age: 47 Year
  Sex: Male
  Weight: 80 kg

DRUGS (22)
  1. FABRAZYME [Suspect]
     Indication: FABRY^S DISEASE
     Dosage: 80 MG, Q2W
     Route: 042
     Dates: start: 20031015
  2. FABRAZYME [Suspect]
     Indication: FABRY^S DISEASE
     Dosage: 80 MG, Q2W
     Route: 042
     Dates: start: 20031015
  3. DUONEB [Concomitant]
     Dosage: AND AS NEEDED (PRN)
  4. WARFARIN [Concomitant]
  5. PRAVACHOL [Concomitant]
  6. NORCO [Concomitant]
  7. METHADONE [Concomitant]
  8. TYLENOL [Concomitant]
  9. GABAPENTIN [Concomitant]
  10. LYRICA [Concomitant]
  11. WELLBUTRIN [Concomitant]
  12. ZOLOFT [Concomitant]
  13. CALCIUM [Concomitant]
  14. POTASSIUM CHLORIDE [Concomitant]
  15. LASIX [Concomitant]
  16. MAGNESIUM OXIDE [Concomitant]
  17. DULCOLAX [Concomitant]
  18. MULTIVITAMINS [Concomitant]
  19. CELLCEPT [Concomitant]
  20. PROGRAF [Concomitant]
  21. ASPIRIN [Concomitant]
  22. ARTIFICIAL TEARS [Concomitant]

REACTIONS (8)
  - Cerebrovascular accident [Not Recovered/Not Resolved]
  - Vertebral artery occlusion [Not Recovered/Not Resolved]
  - Nausea [Not Recovered/Not Resolved]
  - Vomiting [Not Recovered/Not Resolved]
  - Aphasia [Not Recovered/Not Resolved]
  - Vertigo [Not Recovered/Not Resolved]
  - Dizziness [Not Recovered/Not Resolved]
  - Aspiration [Unknown]
